FAERS Safety Report 8515706-2 (Version None)
Quarter: 2012Q3

REPORT INFORMATION
  Report Type: 
  Country: None (occurrence: None)
  Receive Date: 20120717
  Receipt Date: 20120712
  Transmission Date: 20120928
  Serious: Yes (Other)
  Sender: FDA-Public Use
  Company Number: PHHY2012GB060023

PATIENT
  Age: 55 Year
  Sex: Male

DRUGS (2)
  1. SULFADIAZINE [Suspect]
     Indication: CEREBRAL TOXOPLASMOSIS
     Dosage: 2 G, Q6H
  2. PYRIMETHAMINE TAB [Concomitant]
     Dosage: 50 MG, QD

REACTIONS (4)
  - CALCULUS URINARY [None]
  - HYDRONEPHROSIS [None]
  - NEPHROLITHIASIS [None]
  - RENAL FAILURE [None]
